FAERS Safety Report 4023245 (Version 3)
Quarter: 2017Q1

REPORT INFORMATION
  Report Type: Spontaneous
  Country: JP (occurrence: JP)
  Receive Date: 20031107
  Receipt Date: 20170207
  Transmission Date: 20170429
  Serious: Yes (Death, Hospitalization, Other)
  Sender: FDA-Public Use
  Company Number: JP-BRISTOL-MYERS SQUIBB COMPANY-12420964

PATIENT
  Age: 71 Year
  Sex: Female

DRUGS (2)
  1. PARAPLATIN [Suspect]
     Active Substance: CARBOPLATIN
     Indication: OVARIAN CANCER
     Dosage: 200 MG, QD
     Route: 033
     Dates: start: 20031014, end: 20031014
  2. TAXOL [Suspect]
     Active Substance: PACLITAXEL
     Indication: OVARIAN CANCER
     Dosage: 180 MG, QD
     Route: 042
     Dates: start: 20031014, end: 20031014

REACTIONS (3)
  - Pancytopenia [Fatal]
  - Systemic candida [Fatal]
  - Acute respiratory distress syndrome [Fatal]

NARRATIVE: CASE EVENT DATE: 20031017
